FAERS Safety Report 8305062-7 (Version None)
Quarter: 2012Q2

REPORT INFORMATION
  Report Type: 
  Country: None (occurrence: None)
  Receive Date: 20120412
  Receipt Date: 20120329
  Transmission Date: 20120825
  Serious: Yes (Death, Hospitalization)
  Sender: FDA-Public Use
  Company Number: WSDF_00765

PATIENT
  Age: 81 Year
  Sex: Female

DRUGS (3)
  1. WINRHO SDF [Suspect]
     Indication: IDIOPATHIC THROMBOCYTOPENIC PURPURA
     Dosage: 4000 ?G INTRAVENOUS (NOT OTHERWISE SPECIFIED)
     Route: 042
  2. IRON [Concomitant]
  3. METHYLPREDNISOLONE [Concomitant]

REACTIONS (21)
  - CHEST PAIN [None]
  - FIBRIN D DIMER INCREASED [None]
  - MENTAL STATUS CHANGES [None]
  - PNEUMONIA ASPIRATION [None]
  - ENCEPHALOPATHY [None]
  - THROMBOSIS [None]
  - INTERNATIONAL NORMALISED RATIO INCREASED [None]
  - CARDIO-RESPIRATORY ARREST [None]
  - CEREBRAL ATROPHY [None]
  - ABDOMINAL PAIN [None]
  - PROTHROMBIN TIME PROLONGED [None]
  - INFECTION [None]
  - BLOOD FIBRINOGEN INCREASED [None]
  - PLATELET MORPHOLOGY ABNORMAL [None]
  - DRUG INEFFECTIVE [None]
  - CEREBRAL HAEMORRHAGE [None]
  - BRAIN STEM SYNDROME [None]
  - STATUS EPILEPTICUS [None]
  - CEREBELLAR HAEMORRHAGE [None]
  - EMBOLIC STROKE [None]
  - INTRAVASCULAR HAEMOLYSIS [None]
